FAERS Safety Report 20781445 (Version 1)
Quarter: 2022Q2

REPORT INFORMATION
  Report Type: Report from Study
  Country: DE (occurrence: DE)
  Receive Date: 20220504
  Receipt Date: 20220504
  Transmission Date: 20220721
  Serious: Yes (Death, Other)
  Sender: FDA-Public Use
  Company Number: DE-Accord-262484

PATIENT
  Age: 77 Year
  Sex: Female

DRUGS (1)
  1. CISPLATIN [Suspect]
     Active Substance: CISPLATIN
     Indication: Vulval cancer
     Dosage: 40 MG/M2 D1, Q7D., 6 MG/M2 D1-D5, WEEKS 1, 2, 5, AND 6, LOW-DOSE REGIMEN
     Route: 042

REACTIONS (4)
  - Pneumonia [Fatal]
  - Superinfection [Unknown]
  - Radiation skin injury [Unknown]
  - Off label use [Unknown]
